FAERS Safety Report 20046059 (Version 1)
Quarter: 2021Q4

REPORT INFORMATION
  Report Type: Spontaneous
  Country: US (occurrence: None)
  Receive Date: 20211108
  Receipt Date: 20211108
  Transmission Date: 20220303
  Serious: No
  Sender: FDA-Public Use
  Company Number: None

PATIENT
  Sex: Male

DRUGS (1)
  1. EVEROLIMUS [Suspect]
     Active Substance: EVEROLIMUS
     Indication: Connective tissue neoplasm
     Dosage: FREQUENCY : DAILY;?
     Route: 048
     Dates: start: 20211006

REACTIONS (2)
  - Nausea [None]
  - Weight decreased [None]
